FAERS Safety Report 9105566 (Version 1)
Quarter: 2013Q1

REPORT INFORMATION
  Report Type: Spontaneous
  Country: US (occurrence: US)
  Receive Date: 20130221
  Receipt Date: 20130221
  Transmission Date: 20140127
  Serious: Yes (Other)
  Sender: FDA-Public Use
  Company Number: US-TEVA-335357USA

PATIENT
  Age: 70 Year
  Sex: Female

DRUGS (1)
  1. TREANDA [Suspect]

REACTIONS (1)
  - Acute myeloid leukaemia [Unknown]
